FAERS Safety Report 9027249 (Version 2)
Quarter: 2013Q1

REPORT INFORMATION
  Report Type: Spontaneous
  Country: BR (occurrence: BR)
  Receive Date: 20130123
  Receipt Date: 20130219
  Transmission Date: 20140127
  Serious: Yes (Other)
  Sender: FDA-Public Use
  Company Number: PHHY2013BR005250

PATIENT
  Age: 48 Year
  Sex: Female

DRUGS (6)
  1. BUFFERIN [Suspect]
     Indication: HEADACHE
     Dosage: 500 MG, Q8H , STARTED FROM 26 YEARS
     Route: 048
  2. BUFFERIN [Suspect]
     Indication: MENSTRUAL DISORDER
     Dosage: 500 MG, QD, TWO YEARS AGO STARTED
     Route: 048
  3. BEROTEC [Suspect]
  4. SALINE [Suspect]
  5. DIAZEPAM [Concomitant]
     Indication: DEPRESSION
     Dosage: 1 DF, (IN THE MORNING)
     Route: 048
  6. FLUOXETINE [Concomitant]
     Indication: PREMENSTRUAL SYNDROME
     Dosage: 1 DF
     Route: 048

REACTIONS (4)
  - Syncope [Recovered/Resolved]
  - Hallucination [Recovered/Resolved]
  - Hypotension [Recovered/Resolved]
  - Menstrual disorder [Recovering/Resolving]
